FAERS Safety Report 12655802 (Version 1)
Quarter: 2016Q3

REPORT INFORMATION
  Report Type: Spontaneous
  Country: US (occurrence: US)
  Receive Date: 20160816
  Receipt Date: 20160816
  Transmission Date: 20161109
  Serious: No
  Sender: FDA-Public Use
  Company Number: US-PFIZER INC-2016378331

PATIENT
  Age: 82 Year
  Sex: Male
  Weight: 79.38 kg

DRUGS (2)
  1. SONATA [Suspect]
     Active Substance: ZALEPLON
     Indication: SLEEP DISORDER
     Dosage: 5 MG, 1X/DAY AT NIGHT
     Route: 048
     Dates: start: 20160804
  2. BISOPROLOL-HCTZ [Concomitant]
     Indication: BLOOD PRESSURE ABNORMAL
     Dosage: ONE TABLET A DAY
     Route: 048

REACTIONS (2)
  - Drug ineffective [Unknown]
  - Malaise [Unknown]
